FAERS Safety Report 6788516-4 (Version None)
Quarter: 2010Q2

REPORT INFORMATION
  Report Type: 
  Country: None (occurrence: None)
  Receive Date: 20100623
  Receipt Date: 20080328
  Transmission Date: 20101027
  Serious: Yes (Other)
  Sender: FDA-Public Use
  Company Number: US-PFIZER INC-2008028234

PATIENT
  Sex: Female
  Weight: 82 kg

DRUGS (1)
  1. DEPO-PROVERA SUSPENSION/INJ [Suspect]
     Dosage: FIRST INJECTION
     Dates: start: 20060101, end: 20060101

REACTIONS (2)
  - ACNE [None]
  - WEIGHT INCREASED [None]
